FAERS Safety Report 5848533-5 (Version None)
Quarter: 2008Q3

REPORT INFORMATION
  Report Type: 
  Country: None (occurrence: None)
  Receive Date: 20080818
  Receipt Date: 20080807
  Transmission Date: 20090109
  Serious: Yes (Hospitalization, Other)
  Sender: FDA-Public Use
  Company Number: FR-ELI_LILLY_AND_COMPANY-FR200808001226

PATIENT
  Sex: Male

DRUGS (5)
  1. GEMZAR [Suspect]
     Indication: BILE DUCT CANCER
     Dosage: 1000 MG, DAILY (1/D)
     Route: 042
     Dates: start: 20080529
  2. ZOPHREN [Concomitant]
     Dosage: UNK, UNKNOWN
     Route: 042
     Dates: start: 20080529
  3. SOLU-MEDROL [Concomitant]
     Indication: PREMEDICATION
     Dosage: 100 MG, DAILY (1/D)
     Route: 042
     Dates: start: 20080529
  4. RANITIDINE HCL [Concomitant]
     Indication: PREMEDICATION
     Dosage: 50MG/2ML, DAILY (1/D)
     Route: 042
     Dates: start: 20080529
  5. ELOXATIN [Concomitant]
     Dosage: UNK, UNKNOWN
     Route: 065
     Dates: start: 20080529

REACTIONS (3)
  - ANGINA PECTORIS [None]
  - CONGESTIVE CARDIOMYOPATHY [None]
  - MALAISE [None]
